FAERS Safety Report 24445786 (Version 3)
Quarter: 2024Q4

REPORT INFORMATION
  Report Type: Spontaneous
  Country: US (occurrence: US)
  Receive Date: 20241016
  Receipt Date: 20241113
  Transmission Date: 20250115
  Serious: No
  Sender: MYLAN
  Company Number: US-MYLANLABS-2024M1088398

PATIENT
  Age: 57 Year
  Sex: Female
  Weight: 63.5 kg

DRUGS (3)
  1. ESTRADIOL TRANSDERMAL SYSTEM [Suspect]
     Active Substance: ESTRADIOL
     Indication: Menopausal symptoms
     Dosage: 0.05 MILLIGRAM
     Route: 062
     Dates: start: 202402, end: 202404
  2. ESTRADIOL TRANSDERMAL SYSTEM [Suspect]
     Active Substance: ESTRADIOL
     Indication: Menopausal symptoms
     Dosage: 0.05 MILLIGRAM , TWICE WEEKLY
     Route: 062
     Dates: start: 202311, end: 202401
  3. ESTRADIOL TRANSDERMAL SYSTEM [Suspect]
     Active Substance: ESTRADIOL
     Dosage: 0.05 MILLIGRAM, TWICE WEEKLY
     Route: 062

REACTIONS (4)
  - Sleep disorder [Not Recovered/Not Resolved]
  - Blood oestrogen increased [Unknown]
  - Drug ineffective [Unknown]
  - Product substitution issue [Unknown]
